FAERS Safety Report 8128116-7 (Version None)
Quarter: 2012Q1

REPORT INFORMATION
  Report Type: 
  Country: None (occurrence: None)
  Receive Date: 20120210
  Receipt Date: 20120203
  Transmission Date: 20120608
  Serious: Yes (Other)
  Sender: FDA-Public Use
  Company Number: US-BAYER-2011-080608

PATIENT
  Age: 42 Year
  Sex: Female
  Weight: 114.74 kg

DRUGS (6)
  1. GLIPIZIDE [Concomitant]
     Indication: TYPE 2 DIABETES MELLITUS
     Dosage: UNK UNK, BID
     Dates: start: 20030101
  2. JANUMET [Concomitant]
     Indication: TYPE 2 DIABETES MELLITUS
     Dosage: UNK
     Dates: start: 20080101
  3. METFORMIN HCL [Concomitant]
     Indication: TYPE 2 DIABETES MELLITUS
     Dosage: 500 MG, PRN
     Dates: start: 20030101
  4. YASMIN [Suspect]
     Dosage: UNK
     Dates: start: 20040601, end: 20090801
  5. DROSPIRENONE AND ETHINYL ESTRADIOL [Suspect]
     Dosage: UNK
     Dates: start: 20040601, end: 20090801
  6. HYDROCHLOROTHIAZIDE [Concomitant]
     Dosage: 25 MG, PRN
     Dates: start: 20070401

REACTIONS (7)
  - BILIARY DYSKINESIA [None]
  - PAIN [None]
  - ANXIETY [None]
  - GALLBLADDER DISORDER [None]
  - EMOTIONAL DISTRESS [None]
  - INJURY [None]
  - CHOLECYSTITIS CHRONIC [None]
